FAERS Safety Report 13339857 (Version 1)
Quarter: 2017Q1

REPORT INFORMATION
  Report Type: Spontaneous
  Country: GB (occurrence: GB)
  Receive Date: 20170315
  Receipt Date: 20170315
  Transmission Date: 20170428
  Serious: Yes (Other)
  Sender: FDA-Public Use
  Company Number: PHHY2017GB033276

PATIENT
  Age: 23 Year
  Sex: Female
  Weight: 65.77 kg

DRUGS (1)
  1. CLARITHROMYCIN. [Suspect]
     Active Substance: CLARITHROMYCIN
     Indication: ARTHRITIS INFECTIVE
     Dosage: 500 MG, BID
     Route: 048
     Dates: start: 20170215, end: 20170217

REACTIONS (9)
  - Arthralgia [Recovered/Resolved with Sequelae]
  - Renal disorder [Not Recovered/Not Resolved]
  - Hyperhidrosis [Not Recovered/Not Resolved]
  - Heart rate increased [Recovered/Resolved]
  - Headache [Not Recovered/Not Resolved]
  - Depressed mood [Unknown]
  - Nausea [Recovered/Resolved with Sequelae]
  - Lethargy [Not Recovered/Not Resolved]
  - Product taste abnormal [Recovered/Resolved]

NARRATIVE: CASE EVENT DATE: 20170215
